FAERS Safety Report 12780528 (Version 1)
Quarter: 2016Q3

REPORT INFORMATION
  Report Type: Spontaneous
  Country: BR (occurrence: BR)
  Receive Date: 20160926
  Receipt Date: 20160926
  Transmission Date: 20161109
  Serious: Yes (Other)
  Sender: FDA-Public Use
  Company Number: BR-BAYER-2016-184251

PATIENT
  Sex: Female

DRUGS (3)
  1. DESOGESTREL [Concomitant]
     Active Substance: DESOGESTREL
  2. MIRENA [Suspect]
     Active Substance: LEVONORGESTREL
     Dosage: 20 MCG/24HR, CONT
     Route: 015
  3. QLAIRA [Suspect]
     Active Substance: DIENOGEST\ESTRADIOL VALERATE
     Dosage: UNK
     Route: 048

REACTIONS (4)
  - Abdominal pain [None]
  - Menorrhagia [None]
  - Haemorrhage [None]
  - Vaginal haemorrhage [None]
